FAERS Safety Report 6678568-4 (Version None)
Quarter: 2010Q2

REPORT INFORMATION
  Report Type: 
  Country: None (occurrence: None)
  Receive Date: 20100409
  Receipt Date: 20100409
  Transmission Date: 20101027
  Serious: Yes (Other)
  Sender: FDA-Public Use
  Company Number: None

PATIENT
  Age: 59 Year
  Sex: Male
  Weight: 77.1115 kg

DRUGS (2)
  1. ULORIC [Suspect]
     Indication: BLOOD URIC ACID
     Dosage: 1 PER DAY PO
     Dates: start: 20100216, end: 20100219
  2. BENADRYL [Concomitant]

REACTIONS (1)
  - RASH PRURITIC [None]
